FAERS Safety Report 7655890-6 (Version None)
Quarter: 2011Q3

REPORT INFORMATION
  Report Type: 
  Country: None (occurrence: None)
  Receive Date: 20110804
  Receipt Date: 20110804
  Transmission Date: 20111222
  Serious: Yes (Hospitalization)
  Sender: FDA-Public Use
  Company Number: None

PATIENT
  Age: 42 Year
  Sex: Female
  Weight: 86.182 kg

DRUGS (2)
  1. BACTRIM [Suspect]
     Indication: CYSTITIS
     Dosage: 2
     Dates: start: 20110726, end: 20110730
  2. BACTRIM [Suspect]
     Indication: URINARY TRACT INFECTION
     Dosage: 2
     Dates: start: 20110726, end: 20110730

REACTIONS (7)
  - ANXIETY [None]
  - MIGRAINE [None]
  - MOOD SWINGS [None]
  - NERVOUSNESS [None]
  - CHILLS [None]
  - DECREASED INTEREST [None]
  - ACROPHOBIA [None]
